FAERS Safety Report 16419567 (Version 2)
Quarter: 2019Q2

REPORT INFORMATION
  Report Type: Report from Study
  Country: None (occurrence: US)
  Receive Date: 20190612
  Receipt Date: 20190626
  Transmission Date: 20190711
  Serious: Yes (Hospitalization)
  Sender: FDA-Public Use
  Company Number: US-ABBVIE-19K-163-2812915-00

PATIENT
  Age: 71 Year
  Sex: Female

DRUGS (1)
  1. VENCLEXTA [Suspect]
     Active Substance: VENETOCLAX
     Indication: CHRONIC LYMPHOCYTIC LEUKAEMIA
     Route: 048
     Dates: start: 20190529

REACTIONS (5)
  - Swollen tongue [Unknown]
  - Blood sodium decreased [Unknown]
  - Peripheral swelling [Recovering/Resolving]
  - Renal disorder [Unknown]
  - Oral pain [Unknown]

NARRATIVE: CASE EVENT DATE: 2019
